FAERS Safety Report 7139341-6 (Version None)
Quarter: 2010Q4

REPORT INFORMATION
  Report Type: 
  Country: None (occurrence: None)
  Receive Date: 20101206
  Receipt Date: 20101123
  Transmission Date: 20110411
  Serious: Yes (Other)
  Sender: FDA-Public Use
  Company Number: NL-MYLANLABS-2010S1021566

PATIENT
  Age: 71 Year
  Sex: Female
  Weight: 75 kg

DRUGS (10)
  1. NITROFURANTOIN [Suspect]
     Indication: PRODUCT USED FOR UNKNOWN INDICATION
     Dosage: 4DD50MG
     Route: 048
     Dates: start: 20100607, end: 20100614
  2. FLUCONAZOLE [Suspect]
     Indication: PRODUCT USED FOR UNKNOWN INDICATION
     Dosage: 1DD150MG
     Route: 048
     Dates: start: 20100610, end: 20100612
  3. GLIVEC [Suspect]
     Indication: PRODUCT USED FOR UNKNOWN INDICATION
     Dosage: 1DD400MG
     Route: 048
     Dates: start: 20100425, end: 20100803
  4. HYDROXYZINE [Concomitant]
     Indication: PRODUCT USED FOR UNKNOWN INDICATION
     Dosage: 1-2DD25MG
     Route: 048
     Dates: start: 20100615
  5. PARIET [Concomitant]
     Indication: PRODUCT USED FOR UNKNOWN INDICATION
     Dosage: 1DD20MG
     Route: 048
  6. TRIAMCINOLONE ACETONIDE [Concomitant]
     Indication: PRODUCT USED FOR UNKNOWN INDICATION
     Dosage: 2DD
     Route: 003
     Dates: start: 20100615, end: 20100630
  7. CETOMACROGOL EMULS [Concomitant]
     Indication: PRODUCT USED FOR UNKNOWN INDICATION
     Dosage: 2DD
     Route: 003
  8. VESICARE [Concomitant]
     Indication: PRODUCT USED FOR UNKNOWN INDICATION
     Dosage: 1DD5MG
     Route: 048
     Dates: start: 20100615, end: 20100705
  9. SYNAPAUSE E3 [Concomitant]
     Indication: PRODUCT USED FOR UNKNOWN INDICATION
     Dosage: 1DD0,5MG
     Route: 067
     Dates: start: 20100707, end: 20100727
  10. COLECALCIFEROL [Concomitant]
     Indication: PRODUCT USED FOR UNKNOWN INDICATION
     Dosage: 1DD1ML
     Route: 048
     Dates: start: 20100716

REACTIONS (2)
  - AUTOIMMUNE HEPATITIS [None]
  - DRUG INTERACTION [None]
